FAERS Safety Report 7256941-3 (Version None)
Quarter: 2011Q1

REPORT INFORMATION
  Report Type: 
  Country: None (occurrence: None)
  Receive Date: 20110129
  Receipt Date: 20100715
  Transmission Date: 20110831
  Serious: No
  Sender: FDA-Public Use
  Company Number: US-ABBOTT-10P-163-0657156-00

PATIENT
  Sex: Female

DRUGS (4)
  1. HUMIRA [Suspect]
     Indication: CROHN'S DISEASE
     Dates: start: 20100703
  2. ZENTHENT [Concomitant]
     Indication: CONTRACEPTION
  3. LEXAPRO [Concomitant]
     Indication: ANXIETY
  4. IMURON 25 [Concomitant]
     Indication: CROHN'S DISEASE

REACTIONS (1)
  - NIGHT SWEATS [None]
